FAERS Safety Report 10020928 (Version 1)
Quarter: 2014Q1

REPORT INFORMATION
  Report Type: Spontaneous
  Country: US (occurrence: US)
  Receive Date: 20140319
  Receipt Date: 20140319
  Transmission Date: 20141002
  Serious: No
  Sender: FDA-Public Use
  Company Number: US-009507513-1403USA002175

PATIENT
  Age: 71 Year
  Sex: Female
  Weight: 60.77 kg

DRUGS (1)
  1. OXYTROL FOR WOMEN [Suspect]
     Indication: HYPERTONIC BLADDER
     Dosage: UNK, UNKNOWN
     Route: 062
     Dates: start: 201401, end: 201402

REACTIONS (2)
  - Application site irritation [Unknown]
  - Hypersensitivity [Unknown]
